FAERS Safety Report 5733441-0 (Version None)
Quarter: 2008Q2

REPORT INFORMATION
  Report Type: 
  Country: None (occurrence: None)
  Receive Date: 20080509
  Receipt Date: 20080415
  Transmission Date: 20081010
  Serious: Yes (Hospitalization)
  Sender: FDA-Public Use
  Company Number: DE-PFIZER INC-2008033414

PATIENT
  Sex: Female
  Weight: 100 kg

DRUGS (1)
  1. FARMORUBICIN [Suspect]
     Indication: BREAST CANCER
     Route: 042
     Dates: start: 20021017, end: 20021219

REACTIONS (1)
  - CONTRALATERAL BREAST CANCER [None]
